FAERS Safety Report 15843013 (Version 2)
Quarter: 2019Q2

REPORT INFORMATION
  Report Type: Report from Study
  Country: AU (occurrence: AU)
  Receive Date: 20190118
  Receipt Date: 20190415
  Transmission Date: 20190711
  Serious: Yes (Hospitalization)
  Sender: FDA-Public Use
  Company Number: AU-JNJFOC-20190117549

PATIENT
  Age: 74 Year
  Sex: Male

DRUGS (6)
  1. XALATAN [Concomitant]
     Active Substance: LATANOPROST
     Indication: GLAUCOMA
     Route: 065
  2. MAGNESIUM [Concomitant]
     Active Substance: MAGNESIUM
     Indication: SLEEP DISORDER
     Route: 048
  3. IMBRUVICA [Suspect]
     Active Substance: IBRUTINIB
     Indication: MANTLE CELL LYMPHOMA
     Route: 048
     Dates: start: 201804
  4. NITRAZEPAM [Concomitant]
     Active Substance: NITRAZEPAM
     Indication: SEDATIVE THERAPY
     Route: 048
  5. VENETOCLAX. [Concomitant]
     Active Substance: VENETOCLAX
     Indication: B-CELL LYMPHOMA
     Route: 065
     Dates: start: 201809
  6. DAPSONE. [Concomitant]
     Active Substance: DAPSONE
     Indication: ANTIBIOTIC PROPHYLAXIS
     Route: 048
     Dates: start: 201804

REACTIONS (1)
  - Myocardial infarction [Unknown]

NARRATIVE: CASE EVENT DATE: 20190111
